FAERS Safety Report 8464520-5 (Version None)
Quarter: 2012Q2

REPORT INFORMATION
  Report Type: 
  Country: None (occurrence: None)
  Receive Date: 20120323
  Receipt Date: 20111017
  Transmission Date: 20120825
  Serious: Yes (Hospitalization)
  Sender: FDA-Public Use
  Company Number: 163-21880-11102009

PATIENT
  Age: 63 Year
  Sex: Male

DRUGS (12)
  1. LENALIDOMIDE [Suspect]
     Indication: MULTIPLE MYELOMA
     Dosage: 15 MG, X 28 DAYS, PO
     Route: 048
     Dates: start: 20100126
  2. TRAMADOL HCL [Concomitant]
  3. FOLIC ACID [Concomitant]
  4. GABAPENTIN [Concomitant]
  5. MAGNESIUM OXIDE [Concomitant]
  6. URSODIOL [Concomitant]
  7. METOPROLOL SUCCINATE [Concomitant]
  8. NEXIUM [Concomitant]
  9. POTASSIUM ACETATE [Concomitant]
  10. BLOOD TRANSFUSION (BLOOD AND RELATED PRODUCTS) [Concomitant]
  11. ASPIRIN [Concomitant]
  12. STOOL SOFTENER (DOCUSATE SODIUM) [Concomitant]

REACTIONS (3)
  - RASH PRURITIC [None]
  - PNEUMONIA [None]
  - WHITE BLOOD CELL COUNT DECREASED [None]
